FAERS Safety Report 25509621 (Version 1)
Quarter: 2025Q3

REPORT INFORMATION
  Report Type: Spontaneous
  Country: US (occurrence: None)
  Receive Date: 20250703
  Receipt Date: 20250703
  Transmission Date: 20251021
  Serious: Yes (Hospitalization, Other)
  Sender: FDA-CTU
  Company Number: None

PATIENT
  Age: 37 Year
  Sex: Female
  Weight: 62.14 kg

DRUGS (1)
  1. TESTOSTERONE [Suspect]
     Active Substance: TESTOSTERONE

REACTIONS (11)
  - Adverse drug reaction [None]
  - Anxiety [None]
  - Agitation [None]
  - Insomnia [None]
  - Heart rate increased [None]
  - Affect lability [None]
  - Impaired quality of life [None]
  - Blood testosterone increased [None]
  - Device dislocation [None]
  - Wrong technique in device usage process [None]
  - Loss of personal independence in daily activities [None]

NARRATIVE: CASE EVENT DATE: 20250626
